FAERS Safety Report 9413745 (Version 1)
Quarter: 2013Q3

REPORT INFORMATION
  Report Type: Spontaneous
  Country: US (occurrence: US)
  Receive Date: 20130722
  Receipt Date: 20130722
  Transmission Date: 20140515
  Serious: Yes (Hospitalization, Disabling, Other)
  Sender: FDA-Public Use
  Company Number: US-ASTRAZENECA-2012SE35734

PATIENT
  Age: 52 Year
  Sex: Female

DRUGS (9)
  1. NEXIUM [Suspect]
     Indication: GASTROOESOPHAGEAL REFLUX DISEASE
     Route: 048
     Dates: start: 2005
  2. PREVACID [Concomitant]
  3. PROTONIX [Concomitant]
     Indication: GASTRITIS
  4. TUMS [Concomitant]
  5. PEPCID [Concomitant]
  6. ROLAIDS [Concomitant]
  7. AMBIEN [Concomitant]
     Indication: INSOMNIA
  8. PAXIL [Concomitant]
     Indication: DEPRESSION
  9. ADVIL [Concomitant]

REACTIONS (6)
  - Spinal fracture [Unknown]
  - Spinal cord injury [Unknown]
  - Pelvic fracture [Unknown]
  - Abdominal pain [Unknown]
  - Osteoporosis [Unknown]
  - Bone pain [Unknown]
